FAERS Safety Report 8328383-0 (Version None)
Quarter: 2012Q2

REPORT INFORMATION
  Report Type: 
  Country: None (occurrence: None)
  Receive Date: 20120502
  Receipt Date: 20100629
  Transmission Date: 20120825
  Serious: No
  Sender: FDA-Public Use
  Company Number: US-TEVA-2010003533

PATIENT
  Sex: Female

DRUGS (2)
  1. NUVIGIL [Suspect]
     Indication: CHRONIC FATIGUE SYNDROME
     Dosage: 250 MILLIGRAM;
     Route: 048
     Dates: start: 20100401, end: 20100622
  2. NUVIGIL [Suspect]
     Indication: FIBROMYALGIA

REACTIONS (1)
  - DRUG INEFFECTIVE FOR UNAPPROVED INDICATION [None]
